FAERS Safety Report 9250888 (Version 2)
Quarter: 2014Q1

REPORT INFORMATION
  Report Type: Spontaneous
  Country: US (occurrence: US)
  Receive Date: 20130424
  Receipt Date: 20140203
  Transmission Date: 20141002
  Serious: Yes (Other)
  Sender: FDA-Public Use
  Company Number: US-ASTRAZENECA-2013SE27196

PATIENT
  Age: 62 Year
  Sex: Male
  Weight: 103.4 kg

DRUGS (11)
  1. NEXIUM [Suspect]
     Indication: GASTROOESOPHAGEAL REFLUX DISEASE
     Route: 048
     Dates: start: 1995
  2. NEXIUM [Suspect]
     Indication: GASTROOESOPHAGEAL REFLUX DISEASE
     Route: 048
     Dates: start: 20041228
  3. PRILOSEC [Suspect]
     Route: 048
  4. PRILOSEC OTC [Suspect]
     Route: 048
  5. ZANTAC [Concomitant]
  6. PEPCID [Concomitant]
  7. TAGAMET [Concomitant]
  8. ROLAIDS [Concomitant]
  9. MYLANTA [Concomitant]
  10. PEPTO BISMOL [Concomitant]
  11. ASPIRIN [Concomitant]

REACTIONS (12)
  - Hip fracture [Unknown]
  - Cerebrovascular accident [Unknown]
  - Osteoporosis [Unknown]
  - Bone disorder [Unknown]
  - Upper limb fracture [Unknown]
  - Arthritis [Unknown]
  - Depression [Unknown]
  - Diabetes mellitus [Unknown]
  - Androgen deficiency [Unknown]
  - Vitamin D deficiency [Unknown]
  - Radius fracture [Unknown]
  - Ulna fracture [Unknown]
